FAERS Safety Report 4644600-2 (Version None)
Quarter: 2005Q2

REPORT INFORMATION
  Report Type: 
  Country: None (occurrence: None)
  Receive Date: 20050425
  Receipt Date: 20050425
  Transmission Date: 20051028
  Serious: Yes (Death)
  Sender: FDA-Public Use
  Company Number: None

PATIENT
  Age: 78 Year
  Sex: Female
  Weight: 54.4316 kg

DRUGS (2)
  1. REMICADE [Suspect]
     Indication: RHEUMATOID ARTHRITIS
     Dosage: UNK 8WKS PORT
     Route: 050
  2. RITUXAN [Suspect]
     Indication: HAEMOLYTIC ANAEMIA
     Route: 065

REACTIONS (5)
  - BLOOD IRON INCREASED [None]
  - COUGH [None]
  - HAEMOLYTIC ANAEMIA [None]
  - PHARYNGOLARYNGEAL PAIN [None]
  - RASH GENERALISED [None]
